FAERS Safety Report 11245020 (Version 1)
Quarter: 2015Q3

REPORT INFORMATION
  Report Type: Spontaneous
  Country: AU (occurrence: AU)
  Receive Date: 20150707
  Receipt Date: 20150707
  Transmission Date: 20151125
  Serious: Yes (Hospitalization)
  Sender: FDA-Public Use
  Company Number: AU-COREPHARMA LLC-2015COR00137

PATIENT
  Age: 23 Year
  Sex: Male

DRUGS (4)
  1. QUETIAPINE [Suspect]
     Active Substance: QUETIAPINE
     Indication: BIPOLAR DISORDER
  2. AMPHETAMINE [Suspect]
     Active Substance: AMPHETAMINE
  3. NON-TOLUENE SOLVENTS [Suspect]
     Active Substance: UNSPECIFIED INGREDIENT
  4. MIRTAZAPINE. [Suspect]
     Active Substance: MIRTAZAPINE
     Indication: BIPOLAR DISORDER

REACTIONS (9)
  - Compartment syndrome [Recovering/Resolving]
  - Drug interaction [Recovering/Resolving]
  - Toxic leukoencephalopathy [Recovering/Resolving]
  - Liver function test abnormal [Unknown]
  - Unresponsive to stimuli [Recovering/Resolving]
  - Rhabdomyolysis [Unknown]
  - Pneumonia aspiration [Unknown]
  - Central nervous system infection [Unknown]
  - Renal impairment [Unknown]
